FAERS Safety Report 7966101-6 (Version None)
Quarter: 2011Q4

REPORT INFORMATION
  Report Type: 
  Country: None (occurrence: None)
  Receive Date: 20111208
  Receipt Date: 20111206
  Transmission Date: 20120403
  Serious: Yes (Other)
  Sender: FDA-Public Use
  Company Number: US-PFIZER INC-2011298024

PATIENT
  Sex: Female
  Weight: 107.94 kg

DRUGS (3)
  1. KLONOPIN [Concomitant]
     Indication: ANXIETY
     Dosage: 1 MG
  2. GEODON [Suspect]
     Indication: BIPOLAR I DISORDER
     Dosage: 20 MG, 2X/DAY
     Route: 048
     Dates: start: 20101004, end: 20111204
  3. GEODON [Suspect]
     Indication: MENTAL DISORDER

REACTIONS (1)
  - DYSTONIA [None]
